FAERS Safety Report 5257059-1 (Version None)
Quarter: 2007Q1

REPORT INFORMATION
  Report Type: 
  Country: None (occurrence: None)
  Receive Date: 20070307
  Receipt Date: 20070223
  Transmission Date: 20070707
  Serious: Yes (Death, Life-Threatening, Other)
  Sender: FDA-Public Use
  Company Number: HQWYE048126DEC06

PATIENT
  Sex: Male

DRUGS (5)
  1. MYLOTARG [Suspect]
     Indication: ACUTE MYELOID LEUKAEMIA RECURRENT
     Route: 041
     Dates: start: 20061108, end: 20061108
  2. SELBEX [Concomitant]
     Indication: PROPHYLAXIS
     Route: 048
     Dates: start: 20061103, end: 20061121
  3. FAMOTIDINE [Concomitant]
     Indication: PROPHYLAXIS
     Route: 048
     Dates: start: 20061103, end: 20061121
  4. MAGNESIUM OXIDE [Concomitant]
     Indication: PROPHYLAXIS
     Route: 048
     Dates: end: 20061121
  5. BAKTAR [Concomitant]
     Indication: PROPHYLAXIS
     Route: 048
     Dates: start: 20061103, end: 20061121

REACTIONS (5)
  - ASCITES [None]
  - CONDITION AGGRAVATED [None]
  - GASTRIC CANCER [None]
  - NEUTROPHIL COUNT DECREASED [None]
  - SEPSIS [None]
